FAERS Safety Report 23802137 (Version 1)
Quarter: 2024Q2

REPORT INFORMATION
  Report Type: Spontaneous
  Country: US (occurrence: US)
  Receive Date: 20240501
  Receipt Date: 20240501
  Transmission Date: 20240716
  Serious: Yes (Hospitalization)
  Sender: FDA-Public Use
  Company Number: US-STRIDES ARCOLAB LIMITED-2024SP005000

PATIENT
  Age: 37 Year
  Sex: Male

DRUGS (25)
  1. ETOPOSIDE [Suspect]
     Active Substance: ETOPOSIDE
     Indication: Plasma cell myeloma
     Dosage: UNK
     Route: 065
  2. ETOPOSIDE [Suspect]
     Active Substance: ETOPOSIDE
     Dosage: UNK
     Route: 065
  3. ETOPOSIDE [Suspect]
     Active Substance: ETOPOSIDE
     Dosage: UNK
     Route: 065
  4. DARATUMUMAB [Suspect]
     Active Substance: DARATUMUMAB
     Indication: Plasma cell myeloma
     Dosage: UNK
     Route: 065
  5. POMALIDOMIDE [Suspect]
     Active Substance: POMALIDOMIDE
     Indication: Plasma cell myeloma
     Dosage: UNK
     Route: 065
  6. POMALIDOMIDE [Suspect]
     Active Substance: POMALIDOMIDE
     Dosage: UNK
     Route: 065
  7. DEXAMETHASONE [Suspect]
     Active Substance: DEXAMETHASONE
     Indication: Plasma cell myeloma
     Dosage: UNK
     Route: 065
  8. DEXAMETHASONE [Suspect]
     Active Substance: DEXAMETHASONE
     Dosage: UNK (MAINTAINENCE THERAPY)
     Route: 065
  9. DEXAMETHASONE [Suspect]
     Active Substance: DEXAMETHASONE
     Dosage: UNK
     Route: 065
  10. DEXAMETHASONE [Suspect]
     Active Substance: DEXAMETHASONE
     Dosage: UNK
     Route: 065
  11. DEXAMETHASONE [Suspect]
     Active Substance: DEXAMETHASONE
     Dosage: UNK
     Route: 065
  12. DEXAMETHASONE [Suspect]
     Active Substance: DEXAMETHASONE
     Dosage: UNK
     Route: 065
  13. DEXAMETHASONE [Suspect]
     Active Substance: DEXAMETHASONE
     Dosage: UNK
     Route: 065
  14. CARFILZOMIB [Suspect]
     Active Substance: CARFILZOMIB
     Indication: Plasma cell myeloma
     Dosage: UNK
     Route: 065
  15. CARFILZOMIB [Suspect]
     Active Substance: CARFILZOMIB
     Dosage: UNK
     Route: 065
  16. CYCLOPHOSPHAMIDE [Suspect]
     Active Substance: CYCLOPHOSPHAMIDE
     Indication: Plasma cell myeloma
     Dosage: UNK
     Route: 065
  17. CYCLOPHOSPHAMIDE [Suspect]
     Active Substance: CYCLOPHOSPHAMIDE
     Dosage: UNK
     Route: 065
  18. CYCLOPHOSPHAMIDE [Suspect]
     Active Substance: CYCLOPHOSPHAMIDE
     Dosage: UNK
     Route: 065
  19. CISPLATIN [Suspect]
     Active Substance: CISPLATIN
     Indication: Plasma cell myeloma
     Dosage: UNK
     Route: 065
  20. CISPLATIN [Suspect]
     Active Substance: CISPLATIN
     Dosage: UNK
     Route: 065
  21. CISPLATIN [Suspect]
     Active Substance: CISPLATIN
     Dosage: UNK
     Route: 065
  22. ELOTUZUMAB [Suspect]
     Active Substance: ELOTUZUMAB
     Indication: Plasma cell myeloma
     Dosage: UNK
     Route: 065
  23. CILTACABTAGENE AUTOLEUCEL [Suspect]
     Active Substance: CILTACABTAGENE AUTOLEUCEL
     Indication: Plasma cell myeloma
     Dosage: UNK
     Route: 065
  24. LENALIDOMIDE [Concomitant]
     Active Substance: LENALIDOMIDE
     Indication: Plasma cell myeloma
     Dosage: UNK (MAINTENANCE THERAPY)
     Route: 065
  25. IXAZOMIB [Concomitant]
     Active Substance: IXAZOMIB
     Indication: Plasma cell myeloma
     Dosage: UNK
     Route: 065

REACTIONS (3)
  - Graft versus host disease in skin [Unknown]
  - Drug ineffective for unapproved indication [Unknown]
  - Malignant neoplasm progression [Unknown]
